FAERS Safety Report 10524772 (Version 1)
Quarter: 2014Q4

REPORT INFORMATION
  Report Type: Spontaneous
  Country: US (occurrence: US)
  Receive Date: 20141017
  Receipt Date: 20141017
  Transmission Date: 20150528
  Serious: No
  Sender: FDA-Public Use
  Company Number: US-PFIZER INC-2014283933

PATIENT
  Sex: Male

DRUGS (2)
  1. VIAGRA [Suspect]
     Active Substance: SILDENAFIL CITRATE
     Indication: ERECTILE DYSFUNCTION
     Dosage: 5 MG, DAILY
     Route: 048
     Dates: start: 201408
  2. STAMINA RX [Concomitant]
     Dosage: UNK

REACTIONS (2)
  - Penis disorder [Not Recovered/Not Resolved]
  - Ejaculation disorder [Unknown]

NARRATIVE: CASE EVENT DATE: 20141011
